FAERS Safety Report 8393395-8 (Version None)
Quarter: 2012Q2

REPORT INFORMATION
  Report Type: 
  Country: None (occurrence: None)
  Receive Date: 20120529
  Receipt Date: 20120524
  Transmission Date: 20120825
  Serious: No
  Sender: FDA-Public Use
  Company Number: US-PFIZER INC-2012126131

PATIENT

DRUGS (5)
  1. TOPAMAX [Concomitant]
     Dosage: UNK
  2. GABAPENTIN [Suspect]
     Dosage: UNK
  3. MICROGESTIN 1.5/30 [Concomitant]
     Dosage: UNK
  4. PRILOSEC [Concomitant]
     Dosage: UNK
  5. LYRICA [Suspect]
     Dosage: 200 MG (1), 2X/DAY (BID)
     Route: 048

REACTIONS (4)
  - WEIGHT DECREASED [None]
  - MALAISE [None]
  - PAIN [None]
  - NAUSEA [None]
